FAERS Safety Report 8010169-8 (Version None)
Quarter: 2011Q4

REPORT INFORMATION
  Report Type: 
  Country: None (occurrence: None)
  Receive Date: 20111228
  Receipt Date: 20111215
  Transmission Date: 20120403
  Serious: Yes (Other)
  Sender: FDA-Public Use
  Company Number: JP-PFIZER INC-2011298621

PATIENT
  Age: 81 Year
  Sex: Female

DRUGS (7)
  1. AMPICILLIN SODIUM/SULBACTAM SODIUM [Suspect]
     Dosage: 3 G Q 6 HOURS
  2. GENTAMICIN [Concomitant]
     Dosage: UNK
  3. AMPICILLIN SODIUM/SULBACTAM SODIUM [Suspect]
     Indication: ENDOCARDITIS
     Dosage: 2.5 G, 4X/DAY, Q6 HOURS
     Dates: start: 20110501
  4. CEFAZOLIN [Suspect]
     Indication: RASH
     Dosage: 2 G, 3X/DAY, Q8 HOURS
     Dates: start: 20110526
  5. ACETAMINOPHEN [Suspect]
     Dosage: UNK
  6. CEFMETAZOLE [Concomitant]
     Dosage: UNK
  7. CLINDAMYCIN HCL [Suspect]
     Indication: RASH
     Dosage: 600 MG, 3X/DAY, Q8H
     Dates: start: 20110526, end: 20110601

REACTIONS (1)
  - GRANULOCYTE COUNT DECREASED [None]
